FAERS Safety Report 4534937-X (Version None)
Quarter: 2004Q4

REPORT INFORMATION
  Report Type: 
  Country: None (occurrence: None)
  Receive Date: 20041222
  Receipt Date: 20040825
  Transmission Date: 20050328
  Serious: No
  Sender: FDA-Public Use
  Company Number: US-BRISTOL-MYERS SQUIBB COMPANY-12683702

PATIENT
  Age: 63 Year
  Sex: Female
  Weight: 91 kg

DRUGS (8)
  1. PRAVACHOL [Suspect]
     Indication: BLOOD CHOLESTEROL INCREASED
     Route: 048
  2. PLAVIX [Suspect]
     Indication: CEREBROVASCULAR ACCIDENT
     Route: 048
  3. TOPROL-XL [Concomitant]
  4. LOTREL [Concomitant]
  5. COZAAR [Concomitant]
  6. HUMALOG [Concomitant]
  7. LANTUS [Concomitant]
  8. MULTI-VITAMINS [Concomitant]

REACTIONS (8)
  - EYE OPERATION [None]
  - FATIGUE [None]
  - HEADACHE [None]
  - MUSCLE CRAMP [None]
  - MUSCLE SPASMS [None]
  - NAUSEA [None]
  - NEUROPATHY PERIPHERAL [None]
  - VOMITING [None]
